FAERS Safety Report 21650905 (Version 1)
Quarter: 2022Q4

REPORT INFORMATION
  Report Type: Spontaneous
  Country: CZ (occurrence: CZ)
  Receive Date: 20221128
  Receipt Date: 20221128
  Transmission Date: 20230113
  Serious: Yes (Other)
  Sender: FDA-Public Use
  Company Number: CZ-PFIZER INC-202200531008

PATIENT
  Age: 63 Year
  Sex: Female

DRUGS (2)
  1. LORLATINIB [Suspect]
     Active Substance: LORLATINIB
     Indication: Bronchial carcinoma
     Dosage: UNK
     Dates: start: 20200924
  2. XGEVA [Concomitant]
     Active Substance: DENOSUMAB
     Dosage: UNK
     Dates: start: 202008, end: 202208

REACTIONS (9)
  - Second primary malignancy [Unknown]
  - Malignant melanoma [Unknown]
  - Septic arthritis staphylococcal [Unknown]
  - Hypercholesterolaemia [Unknown]
  - Weight increased [Unknown]
  - Oedema peripheral [Unknown]
  - Language disorder [Unknown]
  - COVID-19 [Unknown]
  - Neoplasm progression [Unknown]

NARRATIVE: CASE EVENT DATE: 20220725
